FAERS Safety Report 4822367-2 (Version None)
Quarter: 2005Q4

REPORT INFORMATION
  Report Type: 
  Country: None (occurrence: None)
  Receive Date: 20051104
  Receipt Date: 20050921
  Transmission Date: 20060501
  Serious: Yes (Hospitalization)
  Sender: FDA-Public Use
  Company Number: 2005BI017662

PATIENT
  Age: 56 Year
  Sex: Female

DRUGS (5)
  1. AVONEX [Suspect]
     Indication: MULTIPLE SCLEROSIS
     Dosage: 30 UQ;QW;IM
     Route: 030
     Dates: start: 20011107
  2. AVONEX [Suspect]
     Indication: MULTIPLE SCLEROSIS
     Dosage: 30 UG;QW;IM
     Route: 030
  3. LEXAPRO [Concomitant]
  4. TYLENOL (CAPLET) [Concomitant]
  5. BENADRYL [Concomitant]

REACTIONS (4)
  - BRONCHITIS [None]
  - INFECTION [None]
  - PNEUMONIA [None]
  - PYREXIA [None]
